FAERS Safety Report 10013019 (Version 1)
Quarter: 2014Q1

REPORT INFORMATION
  Report Type: Spontaneous
  Country: US (occurrence: US)
  Receive Date: 20140314
  Receipt Date: 20140314
  Transmission Date: 20141002
  Serious: No
  Sender: FDA-Public Use
  Company Number: US-ASTRAZENECA-2013SE76012

PATIENT
  Sex: Female

DRUGS (1)
  1. ZOMIG ZMT [Suspect]
     Indication: MIGRAINE
     Route: 048

REACTIONS (2)
  - Malaise [Unknown]
  - Urticaria [Unknown]
